FAERS Safety Report 6774274-6 (Version None)
Quarter: 2010Q2

REPORT INFORMATION
  Report Type: 
  Country: None (occurrence: None)
  Receive Date: 20100617
  Receipt Date: 20100611
  Transmission Date: 20101027
  Serious: Yes (Other)
  Sender: FDA-Public Use
  Company Number: HQWYE694211OCT04

PATIENT
  Sex: Female

DRUGS (5)
  1. PREMPRO [Suspect]
     Indication: MENOPAUSAL SYMPTOMS
  2. PROVERA [Suspect]
  3. ESTRACE [Suspect]
  4. MEDROXYPROGESTERONE ACETATE [Suspect]
  5. ESTROPIPATE [Suspect]

REACTIONS (1)
  - BREAST CANCER METASTATIC [None]
